FAERS Safety Report 8851620 (Version 1)
Quarter: 2012Q4

REPORT INFORMATION
  Report Type: 
  Country: DE (occurrence: DE)
  Receive Date: 20121022
  Receipt Date: 20121022
  Transmission Date: 20130627
  Serious: Yes (Hospitalization, Disabling)
  Sender: FDA-Public Use
  Company Number: DE-009507513-1210DEU007742

PATIENT
  Age: 30 Year
  Sex: Male

DRUGS (3)
  1. PROSCAR [Suspect]
     Indication: ALOPECIA
     Dosage: 5 mg tablet was split into 5 pieces, total daily dose reported as 1 mg, qd
     Route: 048
     Dates: start: 2005, end: 200912
  2. PROSCAR [Suspect]
     Dosage: 5 mg tablet was split into 5 pieces, total daily dose reported as 1 mg, qd
     Route: 048
     Dates: start: 201002
  3. PAROXETINE [Concomitant]

REACTIONS (14)
  - Visual impairment [Not Recovered/Not Resolved]
  - Decreased activity [Not Recovered/Not Resolved]
  - Asthenia [Not Recovered/Not Resolved]
  - Hypoglycaemia [Not Recovered/Not Resolved]
  - Muscular weakness [Not Recovered/Not Resolved]
  - Anxiety disorder [Not Recovered/Not Resolved]
  - Hyperhidrosis [Not Recovered/Not Resolved]
  - Tachycardia [Not Recovered/Not Resolved]
  - Dizziness [Not Recovered/Not Resolved]
  - Sleep disorder [Not Recovered/Not Resolved]
  - Depression [Not Recovered/Not Resolved]
  - Mental disorder [Not Recovered/Not Resolved]
  - Intentional drug misuse [Unknown]
  - Wrong technique in drug usage process [Unknown]
